FAERS Safety Report 8531342-6 (Version None)
Quarter: 2012Q3

REPORT INFORMATION
  Report Type: 
  Country: None (occurrence: None)
  Receive Date: 20120723
  Receipt Date: 20120716
  Transmission Date: 20120928
  Serious: Yes (Other)
  Sender: FDA-Public Use
  Company Number: CA-ASTRAZENECA-2012SE47809

PATIENT
  Age: 438 Month
  Sex: Male

DRUGS (2)
  1. PULMICORT [Suspect]
     Indication: MULTIPLE ALLERGIES
     Dosage: 1 PUFF TWICE
     Route: 055
  2. PULMICORT [Suspect]
     Indication: PROPHYLAXIS
     Dosage: 1 PUFF TWICE
     Route: 055

REACTIONS (5)
  - CHEST DISCOMFORT [None]
  - ACTIVITIES OF DAILY LIVING IMPAIRED [None]
  - FATIGUE [None]
  - OFF LABEL USE [None]
  - DRUG DOSE OMISSION [None]
